FAERS Safety Report 6868762-1 (Version None)
Quarter: 2010Q3

REPORT INFORMATION
  Report Type: 
  Country: None (occurrence: None)
  Receive Date: 20100721
  Receipt Date: 20100721
  Transmission Date: 20110219
  Serious: Yes (Other)
  Sender: FDA-Public Use
  Company Number: None

PATIENT
  Age: 51 Year
  Sex: Female
  Weight: 61.2356 kg

DRUGS (1)
  1. GADOLINIUM [Suspect]
     Indication: NECK PAIN
     Dosage: UNKNOWN 1 IV
     Route: 042
     Dates: start: 20100111, end: 20100111

REACTIONS (6)
  - CONTUSION [None]
  - DEFORMITY [None]
  - DRUG HYPERSENSITIVITY [None]
  - PRURITUS [None]
  - RASH PAPULAR [None]
  - SKIN DISCOLOURATION [None]
